FAERS Safety Report 14801530 (Version 2)
Quarter: 2018Q2

REPORT INFORMATION
  Report Type: Spontaneous
  Country: US (occurrence: US)
  Receive Date: 20180424
  Receipt Date: 20180424
  Transmission Date: 20180711
  Serious: Yes (Other)
  Sender: FDA-Public Use
  Company Number: PHEH2018US014999

PATIENT
  Sex: Female

DRUGS (1)
  1. PILOCARPINE HCL [Suspect]
     Active Substance: PILOCARPINE HYDROCHLORIDE
     Indication: PRODUCT USED FOR UNKNOWN INDICATION
     Route: 047

REACTIONS (13)
  - Hyperhidrosis [Unknown]
  - Fatigue [Unknown]
  - Hypersensitivity [Unknown]
  - Coeliac disease [Unknown]
  - Gait disturbance [Unknown]
  - Abdominal discomfort [Unknown]
  - Visual impairment [Unknown]
  - Blindness transient [Unknown]
  - Hypokinesia [Unknown]
  - Chills [Unknown]
  - Wrong technique in product usage process [Unknown]
  - Nasopharyngitis [Unknown]
  - Arthritis [Unknown]
